FAERS Safety Report 10753462 (Version 1)
Quarter: 2015Q1

REPORT INFORMATION
  Report Type: Spontaneous
  Country: GB (occurrence: GB)
  Receive Date: 20150131
  Receipt Date: 20150131
  Transmission Date: 20150721
  Serious: Yes (Disabling)
  Sender: FDA-Public Use
  Company Number: GB-ACCORD-028292

PATIENT
  Age: 51 Year
  Sex: Female
  Weight: 74 kg

DRUGS (3)
  1. CAPASAL [Concomitant]
     Dates: start: 20140926, end: 20141024
  2. MADOPAR [Concomitant]
     Active Substance: BENSERAZIDE HYDROCHLORIDE\LEVODOPA
     Dates: start: 20140929, end: 20141124
  3. SERTRALINE [Suspect]
     Active Substance: SERTRALINE HYDROCHLORIDE
     Indication: PRODUCT USED FOR UNKNOWN INDICATION
     Dates: start: 20140710, end: 20141124

REACTIONS (3)
  - Night sweats [Recovered/Resolved]
  - Diarrhoea [Recovered/Resolved]
  - Colitis microscopic [Unknown]

NARRATIVE: CASE EVENT DATE: 20140910
